FAERS Safety Report 21292877 (Version 2)
Quarter: 2022Q3

REPORT INFORMATION
  Report Type: Report from Study
  Country: US (occurrence: US)
  Receive Date: 20220905
  Receipt Date: 20220923
  Transmission Date: 20221027
  Serious: Yes (Life-Threatening, Disabling, Other)
  Sender: FDA-Public Use
  Company Number: US-GILEAD-2022-0594489

PATIENT
  Age: 51 Year
  Sex: Male
  Weight: 64 kg

DRUGS (63)
  1. AXICABTAGENE CILOLEUCEL [Suspect]
     Active Substance: AXICABTAGENE CILOLEUCEL
     Indication: Diffuse large B-cell lymphoma
     Dosage: 2.0X10^6 CELLS/KG, ONCE
     Route: 042
     Dates: start: 20220815, end: 20220815
  2. OXYGEN [Concomitant]
     Active Substance: OXYGEN
     Indication: Hypoxia
  3. ACETAMINOPHEN [Concomitant]
     Active Substance: ACETAMINOPHEN
  4. CYCLOPHOSPHAMIDE [Concomitant]
     Active Substance: CYCLOPHOSPHAMIDE
  5. FLUDARABINE [Concomitant]
     Active Substance: FLUDARABINE PHOSPHATE
  6. DIPHENHYDRAMINE [Concomitant]
     Active Substance: DIPHENHYDRAMINE
  7. PALONOSETRON [Concomitant]
     Active Substance: PALONOSETRON
  8. PEGFILGRASTIM [Concomitant]
     Active Substance: PEGFILGRASTIM
  9. ACYCLOVIR [Concomitant]
     Active Substance: ACYCLOVIR
  10. CHOLECALCIFEROL [Concomitant]
     Active Substance: CHOLECALCIFEROL
  11. DEXAMETHASONE [Concomitant]
     Active Substance: DEXAMETHASONE
  12. DICLOFENAC SODIUM [Concomitant]
     Active Substance: DICLOFENAC SODIUM
  13. DOCUSATE SODIUM [Concomitant]
     Active Substance: DOCUSATE SODIUM
  14. DORZOLAMIDE\TIMOLOL [Concomitant]
     Active Substance: DORZOLAMIDE\TIMOLOL
  15. FAMOTIDINE [Concomitant]
     Active Substance: FAMOTIDINE
  16. LATANOPROST [Concomitant]
     Active Substance: LATANOPROST
  17. LEVETIRACETAM [Concomitant]
     Active Substance: LEVETIRACETAM
  18. LEVOFLOXACIN [Concomitant]
     Active Substance: LEVOFLOXACIN
  19. LORAZEPAM [Concomitant]
     Active Substance: LORAZEPAM
  20. MELATONIN [Concomitant]
     Active Substance: MELATONIN
  21. MORPHINE [Concomitant]
     Active Substance: MORPHINE
  22. POLYETHYLENE GLYCOL 3350 [Concomitant]
     Active Substance: POLYETHYLENE GLYCOL 3350
  23. POTASSIUM CHLORIDE [Concomitant]
     Active Substance: POTASSIUM CHLORIDE
  24. PREGABALIN [Concomitant]
     Active Substance: PREGABALIN
  25. ROSUVASTATIN [Concomitant]
     Active Substance: ROSUVASTATIN
  26. SENNA LEAF [Concomitant]
     Active Substance: SENNA LEAF
  27. SEVELAMER CARBONATE [Concomitant]
     Active Substance: SEVELAMER CARBONATE
  28. SODIUM CHLORIDE [Concomitant]
     Active Substance: SODIUM CHLORIDE
  29. SULFAMETHOXAZOLE\TRIMETHOPRIM [Concomitant]
     Active Substance: SULFAMETHOXAZOLE\TRIMETHOPRIM
  30. TAMSULOSIN [Concomitant]
     Active Substance: TAMSULOSIN
  31. ANAKINRA [Concomitant]
     Active Substance: ANAKINRA
  32. ATOVAQUONE [Concomitant]
     Active Substance: ATOVAQUONE
  33. BISACODYL [Concomitant]
     Active Substance: BISACODYL
  34. CALCIUM GLUCONATE [Concomitant]
     Active Substance: CALCIUM GLUCONATE
  35. CEFEPIME [Concomitant]
     Active Substance: CEFEPIME HYDROCHLORIDE
  36. EPINEPHRINE [Concomitant]
     Active Substance: EPINEPHRINE
  37. FENTANYL [Concomitant]
     Active Substance: FENTANYL
  38. FUROSEMIDE [Concomitant]
     Active Substance: FUROSEMIDE
  39. GADOBUTROL [Concomitant]
     Active Substance: GADOBUTROL
  40. HYDROCORTISONE SODIUM SUCCINATE [Concomitant]
     Active Substance: HYDROCORTISONE SODIUM SUCCINATE
  41. INSULIN BEEF [Concomitant]
     Active Substance: INSULIN BEEF
  42. INSULIN BEEF [Concomitant]
     Active Substance: INSULIN BEEF
  43. CEFTAZIDIME [Concomitant]
     Active Substance: CEFTAZIDIME
  44. IOHEXOL [Concomitant]
     Active Substance: IOHEXOL
  45. LACTATED RINGERS SOLUTION [Concomitant]
     Active Substance: CALCIUM CHLORIDE\POTASSIUM CHLORIDE\SODIUM CHLORIDE\SODIUM LACTATE
  46. LACTULOSE [Concomitant]
     Active Substance: LACTULOSE
  47. LIDOCAINE [Concomitant]
     Active Substance: LIDOCAINE
  48. MAGNESIUM HYDROXIDE [Concomitant]
     Active Substance: MAGNESIUM HYDROXIDE
  49. MAGNESIUM SULFATE [Concomitant]
     Active Substance: MAGNESIUM SULFATE
  50. METHYLPREDNISOLONE SODIUM SUCCINATE [Concomitant]
     Active Substance: METHYLPREDNISOLONE SODIUM SUCCINATE
  51. MICAFUNGIN [Concomitant]
     Active Substance: MICAFUNGIN
  52. MIDAZOLAM [Concomitant]
     Active Substance: MIDAZOLAM
  53. MIDODRINE [Concomitant]
     Active Substance: MIDODRINE
  54. NOREPINEPHRINE [Concomitant]
     Active Substance: NOREPINEPHRINE
  55. NYSTATIN [Concomitant]
     Active Substance: NYSTATIN
  56. ONDANSETRON [Concomitant]
     Active Substance: ONDANSETRON
  57. PHENYLEPHRINE HYDROCHLORIDE [Concomitant]
     Active Substance: PHENYLEPHRINE HYDROCHLORIDE
  58. PROPOFOL [Concomitant]
     Active Substance: PROPOFOL
  59. SODIUM BICARBONATE [Concomitant]
     Active Substance: SODIUM BICARBONATE
  60. SUXAMETHONIUM BROMIDE [Concomitant]
     Active Substance: SUXAMETHONIUM BROMIDE
  61. TBO FILGRASTIM [Concomitant]
  62. TOCILIZUMAB [Concomitant]
     Active Substance: TOCILIZUMAB
     Dosage: 510 MG/M2
     Dates: start: 20220821
  63. UREA [Concomitant]
     Active Substance: UREA

REACTIONS (4)
  - Cholecystitis [Recovered/Resolved]
  - Loss of consciousness [Recovered/Resolved]
  - Immune effector cell-associated neurotoxicity syndrome [Recovered/Resolved]
  - Cytokine release syndrome [Recovered/Resolved]

NARRATIVE: CASE EVENT DATE: 20220818
